FAERS Safety Report 4910750-6 (Version None)
Quarter: 2006Q1

REPORT INFORMATION
  Report Type: 
  Country: None (occurrence: None)
  Receive Date: 20060214
  Receipt Date: 20060110
  Transmission Date: 20060701
  Serious: Yes (Hospitalization)
  Sender: FDA-Public Use
  Company Number: US-BRISTOL-MYERS SQUIBB COMPANY-13242631

PATIENT
  Age: 75 Year
  Sex: Male
  Weight: 56 kg

DRUGS (13)
  1. ERBITUX [Suspect]
     Indication: PANCREATIC CARCINOMA
     Dosage: INITIAL DOSE ON 21-DEC-2005.  SECOND DOSE ON 28-DEC-2005.  ACTUAL DOSE: 425 MG.
     Route: 042
     Dates: start: 20060104, end: 20060104
  2. GEMCITABINE [Suspect]
     Indication: PANCREATIC CARCINOMA
     Dosage: INITIAL DOSE ON 28-DEC-2005.  ACTUAL DOSE: 340 MG.
     Route: 042
     Dates: start: 20060104, end: 20060104
  3. RADIATION THERAPY [Suspect]
     Indication: PANCREATIC CARCINOMA
     Dosage: RADIATION HELD.
     Dates: start: 20060106, end: 20060106
  4. AMBIEN [Concomitant]
     Dosage: AT HS.
  5. COLACE [Concomitant]
     Dosage: TWICE DAILY AS NEEDED.
  6. FLEXERIL [Concomitant]
  7. MIRAPEX [Concomitant]
  8. NEXIUM [Concomitant]
  9. PERCOCET [Concomitant]
     Dosage: 5/325 MG EVERY FOUR HOURS PRN.
  10. PLAVIX [Concomitant]
  11. PROPRANOLOL [Concomitant]
  12. PROZAC [Concomitant]
     Route: 048
  13. REGLAN [Concomitant]

REACTIONS (7)
  - BLOOD BILIRUBIN INCREASED [None]
  - EROSIVE OESOPHAGITIS [None]
  - HYPOVOLAEMIA [None]
  - NAUSEA [None]
  - PLATELET COUNT DECREASED [None]
  - RETCHING [None]
  - VOMITING [None]
